FAERS Safety Report 7946878-6 (Version None)
Quarter: 2011Q4

REPORT INFORMATION
  Report Type: 
  Country: None (occurrence: None)
  Receive Date: 20111129
  Receipt Date: 20111122
  Transmission Date: 20120403
  Serious: Yes (Other)
  Sender: FDA-Public Use
  Company Number: PHHY2011BR102597

PATIENT
  Sex: Female

DRUGS (1)
  1. FORMOTEROL FUMARATE [Suspect]

REACTIONS (5)
  - FEELING ABNORMAL [None]
  - NERVOUSNESS [None]
  - SYNCOPE [None]
  - BLOOD PRESSURE DECREASED [None]
  - MALAISE [None]
